FAERS Safety Report 8136273-1 (Version None)
Quarter: 2012Q1

REPORT INFORMATION
  Report Type: 
  Country: None (occurrence: None)
  Receive Date: 20120103
  Receipt Date: 20111024
  Transmission Date: 20120608
  Serious: No
  Sender: FDA-Public Use
  Company Number: AE-2011-002639

PATIENT
  Age: 45 Year
  Sex: Male

DRUGS (5)
  1. GLUCOTROL [Concomitant]
  2. INSULIN [Concomitant]
  3. INTERFERON (PEGINTERFERON ALFA-2A) [Concomitant]
  4. INCIVEK [Suspect]
     Dosage: 2250 MG (750 MG, 3 IN 1 D), ORAL
     Route: 048
     Dates: start: 20111014
  5. RIBASPHERE [Concomitant]

REACTIONS (1)
  - ASTHENIA [None]
